FAERS Safety Report 4739198-4 (Version None)
Quarter: 2005Q3

REPORT INFORMATION
  Report Type: 
  Country: None (occurrence: None)
  Receive Date: 20050810
  Receipt Date: 20050519
  Transmission Date: 20060218
  Serious: No
  Sender: FDA-Public Use
  Company Number: US-GLAXOSMITHKLINE-A0559334A

PATIENT
  Age: 37 Year
  Sex: Female

DRUGS (3)
  1. PAXIL CR [Suspect]
     Dosage: 12.5MG PER DAY
     Route: 048
  2. LOTREL [Concomitant]
  3. LEXAPRO [Concomitant]

REACTIONS (7)
  - ANXIETY [None]
  - DRUG WITHDRAWAL SYNDROME [None]
  - DRY MOUTH [None]
  - FEELING HOT AND COLD [None]
  - HEADACHE [None]
  - INSOMNIA [None]
  - MENORRHAGIA [None]
